FAERS Safety Report 6806675-1 (Version None)
Quarter: 2010Q2

REPORT INFORMATION
  Report Type: 
  Country: None (occurrence: None)
  Receive Date: 20100629
  Receipt Date: 20080422
  Transmission Date: 20101027
  Serious: Yes (Other)
  Sender: FDA-Public Use
  Company Number: US-PFIZER INC-2008031690

PATIENT
  Sex: Female
  Weight: 82.272 kg

DRUGS (4)
  1. TIKOSYN [Suspect]
     Indication: ATRIAL FIBRILLATION
     Route: 048
     Dates: start: 20080402
  2. ALTACE [Concomitant]
  3. ASPIRINE [Concomitant]
  4. COUMADIN [Concomitant]

REACTIONS (2)
  - ATRIAL FLUTTER [None]
  - CHEST PAIN [None]
